FAERS Safety Report 13384674 (Version 1)
Quarter: 2017Q1

REPORT INFORMATION
  Report Type: Spontaneous
  Country: US (occurrence: US)
  Receive Date: 20170329
  Receipt Date: 20170329
  Transmission Date: 20170429
  Serious: Yes (Hospitalization, Other)
  Sender: FDA-Public Use
  Company Number: US-BAUSCH-BL-2017-007926

PATIENT
  Age: 67 Year
  Sex: Male

DRUGS (3)
  1. ATIVAN [Suspect]
     Active Substance: LORAZEPAM
     Route: 065
     Dates: start: 20170218
  2. ATIVAN [Suspect]
     Active Substance: LORAZEPAM
     Indication: NERVOUSNESS
     Route: 065
     Dates: start: 20170213
  3. NORTHERA [Suspect]
     Active Substance: DROXIDOPA
     Indication: PRODUCT USED FOR UNKNOWN INDICATION
     Route: 065
     Dates: end: 20170218

REACTIONS (4)
  - Intentional overdose [Unknown]
  - Hypertension [Recovered/Resolved]
  - Weight decreased [Unknown]
  - Accidental overdose [Unknown]

NARRATIVE: CASE EVENT DATE: 201702
